FAERS Safety Report 6965016-X (Version None)
Quarter: 2010Q3

REPORT INFORMATION
  Report Type: 
  Country: None (occurrence: None)
  Receive Date: 20100903
  Receipt Date: 20100825
  Transmission Date: 20110219
  Serious: Yes (Death, Hospitalization)
  Sender: FDA-Public Use
  Company Number: CA-JNJFOC-20100804400

PATIENT
  Sex: Female
  Weight: 58 kg

DRUGS (7)
  1. REMICADE [Suspect]
     Indication: COLITIS ULCERATIVE
     Dosage: NO EFFECTS, NORMAL INFUSION
     Route: 042
  2. REMICADE [Suspect]
     Dosage: NO EFFECTS, NORMAL INFUSION
     Route: 042
  3. REMICADE [Suspect]
     Route: 042
  4. PURINETHOL [Concomitant]
  5. MEZAVANT [Concomitant]
  6. PREDNISONE [Concomitant]
  7. HYDROCORTISONE [Concomitant]
     Indication: PREMEDICATION
     Dosage: PRE-INFUSION
     Route: 042

REACTIONS (9)
  - ASTHENIA [None]
  - COMA [None]
  - DEATH [None]
  - MALAISE [None]
  - PALLOR [None]
  - PYREXIA [None]
  - SEPSIS [None]
  - SKIN DISCOLOURATION [None]
  - VOMITING [None]
